FAERS Safety Report 12217593 (Version 1)
Quarter: 2016Q1

REPORT INFORMATION
  Report Type: Spontaneous
  Country: None (occurrence: None)
  Receive Date: 20160328
  Receipt Date: 20160328
  Transmission Date: 20160526
  Serious: Yes (Disabling)
  Sender: FDA-Public Use
  Company Number: None

PATIENT
  Sex: Female

DRUGS (3)
  1. SYNTHROID [Concomitant]
     Active Substance: LEVOTHYROXINE SODIUM
  2. PRIOBIOTIC [Concomitant]
  3. VICTOZA [Suspect]
     Active Substance: LIRAGLUTIDE
     Indication: GLYCOSYLATED HAEMOGLOBIN INCREASED
     Dosage: 1 INJECTION (S) IN THE MORNING GIVEN INTO/UNDER THE SKIN

REACTIONS (9)
  - Malaise [None]
  - Somnolence [None]
  - Dyspepsia [None]
  - Abdominal pain upper [None]
  - Nausea [None]
  - Vomiting [None]
  - Diarrhoea [None]
  - Hypophagia [None]
  - Abnormal faeces [None]

NARRATIVE: CASE EVENT DATE: 20160301
